FAERS Safety Report 8551116 (Version 3)
Quarter: 2012Q4

REPORT INFORMATION
  Report Type: Report from Study
  Country: JP (occurrence: JP)
  Receive Date: 20120508
  Receipt Date: 20121010
  Transmission Date: 20130627
  Serious: Yes (Hospitalization)
  Sender: FDA-Public Use
  Company Number: JP-EISAI INC-E7389-01389-SPO-JP

PATIENT
  Age: 56 Year
  Sex: Female
  Weight: 65 kg

DRUGS (8)
  1. HALAVEN [Suspect]
     Indication: BREAST CANCER RECURRENT
     Route: 042
     Dates: start: 20110804, end: 20110811
  2. HALAVEN [Suspect]
     Indication: METASTASES TO LUNG
  3. HALAVEN [Suspect]
     Indication: METASTASES TO BONE
  4. HALAVEN [Suspect]
     Indication: PLEURAL METASTASES
  5. BROCIN CODEINE [Concomitant]
     Route: 048
  6. PL (NON-PYRINE COLD PREPARATION) [Concomitant]
     Route: 048
  7. CLARITH [Concomitant]
     Route: 048
  8. CRAVIT [Concomitant]
     Indication: FEVER

REACTIONS (1)
  - Pleural effusion [Recovering/Resolving]
